FAERS Safety Report 10494259 (Version 2)
Quarter: 2015Q1

REPORT INFORMATION
  Report Type: Spontaneous
  Country: US (occurrence: US)
  Receive Date: 20141003
  Receipt Date: 20150310
  Transmission Date: 20150720
  Serious: Yes (Hospitalization)
  Sender: FDA-Public Use
  Company Number: US-GLAXOSMITHKLINE-A1090681A

PATIENT
  Sex: Female

DRUGS (4)
  1. TYLENOL [Suspect]
     Active Substance: ACETAMINOPHEN
     Indication: NASOPHARYNGITIS
     Dosage: 2 TABLETS. UNKNOWN DOSING.TAKES 1 TABLET AT A TIME, BECAUSE OTHERWISE WILL CAUSE PSORIASIS BREAKOUT.
     Route: 065
  2. SORIATANE [Suspect]
     Active Substance: ACITRETIN
     Indication: PSORIASIS
     Dosage: 25 MG, QOD
     Route: 048
  3. SORIATANE [Suspect]
     Active Substance: ACITRETIN
     Dosage: 25 MG, QD
     Route: 048
  4. SORIATANE [Suspect]
     Active Substance: ACITRETIN
     Dosage: 50 MG, QD
     Route: 048

REACTIONS (13)
  - Psoriasis [Recovered/Resolved]
  - Contusion [Unknown]
  - Skin exfoliation [Recovered/Resolved]
  - Rash pustular [Unknown]
  - Nail disorder [Recovered/Resolved]
  - Pain of skin [Unknown]
  - Arthralgia [Unknown]
  - Erythema [Recovered/Resolved]
  - Pruritus [Unknown]
  - Infection [Unknown]
  - Skin irritation [Recovered/Resolved]
  - Pyrexia [Unknown]
  - Leukocytosis [Unknown]
